FAERS Safety Report 11181074 (Version 1)
Quarter: 2015Q2

REPORT INFORMATION
  Report Type: Spontaneous
  Country: FR (occurrence: FR)
  Receive Date: 20150611
  Receipt Date: 20150611
  Transmission Date: 20150821
  Serious: Yes (Life-Threatening, Hospitalization)
  Sender: FDA-Public Use
  Company Number: FR-HOSPIRA-2889739

PATIENT
  Age: 77 Year
  Sex: Male

DRUGS (8)
  1. ODRIK [Concomitant]
     Active Substance: TRANDOLAPRIL
     Indication: PRODUCT USED FOR UNKNOWN INDICATION
  2. INEXIUM                            /01479302/ [Concomitant]
     Active Substance: ESOMEPRAZOLE MAGNESIUM
     Indication: PRODUCT USED FOR UNKNOWN INDICATION
  3. LAROXYL [Concomitant]
     Active Substance: AMITRIPTYLINE
     Indication: PRODUCT USED FOR UNKNOWN INDICATION
  4. COUMADINE [Concomitant]
     Active Substance: WARFARIN SODIUM
     Indication: PRODUCT USED FOR UNKNOWN INDICATION
  5. CORDARONE [Concomitant]
     Active Substance: AMIODARONE HYDROCHLORIDE
     Indication: PRODUCT USED FOR UNKNOWN INDICATION
  6. TAHOR [Concomitant]
     Active Substance: ATORVASTATIN CALCIUM
     Indication: PRODUCT USED FOR UNKNOWN INDICATION
  7. ZYLORIC [Concomitant]
     Active Substance: ALLOPURINOL
     Indication: PRODUCT USED FOR UNKNOWN INDICATION
  8. DOCETAXEL HOSPIRA [Suspect]
     Active Substance: DOCETAXEL
     Indication: LUNG ADENOCARCINOMA
     Route: 042
     Dates: start: 20150120, end: 20150120

REACTIONS (4)
  - Tachycardia [Recovering/Resolving]
  - Cardiac failure [Recovering/Resolving]
  - Dyspnoea [Recovering/Resolving]
  - Hypothyroidism [Recovering/Resolving]

NARRATIVE: CASE EVENT DATE: 20150123
